FAERS Safety Report 15821612 (Version 1)
Quarter: 2019Q1

REPORT INFORMATION
  Report Type: Spontaneous
  Country: US (occurrence: US)
  Receive Date: 20190113
  Receipt Date: 20190113
  Transmission Date: 20190417
  Serious: Yes (Other)
  Sender: FDA-Public Use
  Company Number: None

PATIENT
  Age: 52 Year
  Sex: Female
  Weight: 76.5 kg

DRUGS (10)
  1. DILAUDID [Concomitant]
     Active Substance: HYDROMORPHONE HYDROCHLORIDE
  2. BYSTOLIC [Concomitant]
     Active Substance: NEBIVOLOL HYDROCHLORIDE
  3. METHADONE [Concomitant]
     Active Substance: METHADONE HYDROCHLORIDE
  4. FLOMAX [Concomitant]
     Active Substance: TAMSULOSIN HYDROCHLORIDE
  5. LASIX [Concomitant]
     Active Substance: FUROSEMIDE
  6. FLOVENT [Concomitant]
     Active Substance: FLUTICASONE PROPIONATE
  7. MAGNESIUM [Concomitant]
     Active Substance: MAGNESIUM
  8. HYDROMORPHONE [Suspect]
     Active Substance: HYDROMORPHONE
     Indication: PAIN
     Dosage: ?          QUANTITY:1 TABLET(S);?
     Route: 048
     Dates: start: 20180605
  9. PACEMAKER [Concomitant]
  10. FLONASE [Concomitant]
     Active Substance: FLUTICASONE PROPIONATE

REACTIONS (2)
  - Urticaria [None]
  - Documented hypersensitivity to administered product [None]

NARRATIVE: CASE EVENT DATE: 20180605
